FAERS Safety Report 25425375 (Version 1)
Quarter: 2025Q2

REPORT INFORMATION
  Report Type: Spontaneous
  Country: IN (occurrence: IN)
  Receive Date: 20250611
  Receipt Date: 20250611
  Transmission Date: 20250716
  Serious: Yes (Life-Threatening, Hospitalization, Other)
  Sender: Harrow Health
  Company Number: IN-HARROW-HAR-2025-IN-00255

PATIENT
  Sex: Female

DRUGS (1)
  1. NATACYN [Suspect]
     Active Substance: NATAMYCIN
     Indication: Keratitis fungal

REACTIONS (3)
  - Keratitis fungal [Recovered/Resolved]
  - Visual acuity reduced [Recovered/Resolved]
  - Drug ineffective [Unknown]
